FAERS Safety Report 8810422 (Version 4)
Quarter: 2013Q1

REPORT INFORMATION
  Report Type: Spontaneous
  Country: BR (occurrence: BR)
  Receive Date: 20120927
  Receipt Date: 20130129
  Transmission Date: 20140127
  Serious: Yes (Other)
  Sender: FDA-Public Use
  Company Number: BR-AMGEN-BRASP2012050462

PATIENT
  Age: 59 Year
  Sex: Female
  Weight: 47 kg

DRUGS (29)
  1. ENBREL [Suspect]
     Indication: RHEUMATOID ARTHRITIS
     Dosage: 50 MG, ONCE WEEKLY
     Route: 058
     Dates: start: 20120730, end: 201209
  2. METHOTREXATE SODIUM [Suspect]
     Dosage: 17.5 MG, ONCE WEEKLY
     Dates: start: 1992
  3. METHOTREXATE SODIUM [Suspect]
     Dosage: 20 MG, QWK
     Route: 048
  4. CORTISONE [Suspect]
     Dosage: UNK
     Dates: start: 1992
  5. ALENDRONATE SODIUM [Concomitant]
     Indication: OSTEOPOROSIS
     Dosage: 70 MG, ONCE WEEKLY
  6. SIMVASTATIN [Concomitant]
     Indication: BLOOD CHOLESTEROL
     Dosage: 20 MG, 1X/DAY AT NIGHT
  7. SIMVASTATIN [Concomitant]
     Indication: BLOOD CHOLESTEROL ABNORMAL
  8. MACRODANTINA [Concomitant]
     Indication: URINARY TRACT INFECTION
     Dosage: 100 MG, 1X/DAY
  9. URO-VAXOM [Concomitant]
     Indication: URINARY TRACT INFECTION
     Dosage: 100 MG, 1X/DAY
  10. FOLIC ACID [Concomitant]
     Dosage: UNK
     Route: 048
  11. FOLIC ACID [Concomitant]
     Dosage: 2 TABLETS (5MG EACH)  WEEKLY
     Route: 048
  12. REDOXON                            /00008001/ [Concomitant]
     Dosage: UNK, 1X/DAY
  13. OSSOTRAT-D [Concomitant]
     Dosage: 600 MG, 1X/DAY
  14. ALPRAZOLAM [Concomitant]
     Indication: ANTIDEPRESSANT THERAPY
     Dosage: 2 MG, 3X/DAY
     Route: 048
  15. ALPRAZOLAM [Concomitant]
     Dosage: 3 TABLETS OR CAPSULES (FORMULATION NOT SPECIFIED BY REPORTER) DAILY
  16. LACRIMA PLUS [Concomitant]
     Dosage: UNK
  17. PREMARIN [Concomitant]
     Dosage: UNK, 2X/WEEK
  18. IMIPRAMINE [Concomitant]
     Dosage: 25 MG, UNK
  19. ALOIN [Concomitant]
     Dosage: 20 MG, UNK
  20. NORTRIPTYLINE [Concomitant]
     Dosage: 25 MG, UNK
  21. NORTRIPTYLINE [Concomitant]
     Dosage: 25 MG, 1X/DAY
  22. FUCUS                              /07494301/ [Concomitant]
     Dosage: 25 MG, UNK
  23. VITAMIN C                          /00008001/ [Concomitant]
     Dosage: UNK, 1X/DAY
  24. METICORTEN [Concomitant]
     Dosage: UNK
  25. OMEPRAZOLE [Concomitant]
     Dosage: 20 MG, UNK
     Route: 048
  26. BENZALKONIUM CHLORIDE [Concomitant]
     Dosage: UNK
  27. SENNA                              /00142201/ [Concomitant]
     Dosage: 100 MG, QD
  28. METRONIDAZOLE BENZOATE [Concomitant]
     Dosage: UNK
  29. NYSTATIN [Concomitant]
     Dosage: UNK

REACTIONS (6)
  - Back pain [Unknown]
  - Headache [Not Recovered/Not Resolved]
  - Tremor [Not Recovered/Not Resolved]
  - Limb discomfort [Not Recovered/Not Resolved]
  - Oral discomfort [Not Recovered/Not Resolved]
  - Urinary tract infection [Not Recovered/Not Resolved]
